FAERS Safety Report 4796263-3 (Version None)
Quarter: 2005Q4

REPORT INFORMATION
  Report Type: 
  Country: None (occurrence: None)
  Receive Date: 20051005
  Receipt Date: 20051005
  Transmission Date: 20060501
  Serious: Yes (Life-Threatening)
  Sender: FDA-Public Use
  Company Number: None

PATIENT
  Age: 58 Year
  Sex: Male
  Weight: 81.6475 kg

DRUGS (1)
  1. ATROPINE SULFATE [Suspect]
     Indication: BRADYCARDIA
     Dosage: 1/2 MG IV
     Route: 042

REACTIONS (3)
  - CARDIAC ARREST [None]
  - DEVICE FAILURE [None]
  - PHARMACEUTICAL PRODUCT COMPLAINT [None]
